FAERS Safety Report 17288479 (Version 2)
Quarter: 2020Q1

REPORT INFORMATION
  Report Type: Report from Study
  Country: None (occurrence: TN)
  Receive Date: 20200120
  Receipt Date: 20200126
  Transmission Date: 20200409
  Serious: No
  Sender: FDA-Public Use
  Company Number: TN-ABBVIE-19K-160-3204087-00

PATIENT
  Sex: Female

DRUGS (5)
  1. HUMIRA [Suspect]
     Active Substance: ADALIMUMAB
     Route: 058
     Dates: start: 20190716, end: 20190716
  2. HUMIRA [Suspect]
     Active Substance: ADALIMUMAB
     Route: 058
     Dates: start: 20190711, end: 20190711
  3. HUMIRA [Suspect]
     Active Substance: ADALIMUMAB
     Route: 058
     Dates: start: 20190716, end: 20191112
  4. HUMIRA [Suspect]
     Active Substance: ADALIMUMAB
     Indication: CROHN^S DISEASE
     Route: 058
     Dates: start: 20200108
  5. HUMIRA [Suspect]
     Active Substance: ADALIMUMAB
     Indication: CROHN^S DISEASE
     Route: 058
     Dates: start: 20190708, end: 20190708

REACTIONS (5)
  - Drug ineffective [Recovered/Resolved]
  - Purulence [Not Recovered/Not Resolved]
  - Crohn^s disease [Unknown]
  - Anal dilatation [Unknown]
  - Intestinal fistula repair [Unknown]

NARRATIVE: CASE EVENT DATE: 2019
